FAERS Safety Report 20565769 (Version 1)
Quarter: 2022Q1

REPORT INFORMATION
  Report Type: Report from Study
  Country: CN (occurrence: CN)
  Receive Date: 20220308
  Receipt Date: 20220308
  Transmission Date: 20220424
  Serious: Yes (Other)
  Sender: FDA-Public Use
  Company Number: CN-ASTELLAS-2022US008483

PATIENT
  Age: 24 Year
  Sex: Male

DRUGS (7)
  1. GILTERITINIB [Suspect]
     Active Substance: GILTERITINIB
     Indication: Acute myeloid leukaemia
     Dosage: 120 MG, UNKNOWN FREQ. (D1-7)
     Route: 065
     Dates: start: 202104, end: 2021
  2. GILTERITINIB [Suspect]
     Active Substance: GILTERITINIB
     Route: 065
     Dates: start: 2021
  3. AZACITIDINE [Concomitant]
     Active Substance: AZACITIDINE
     Indication: Acute myeloid leukaemia
     Dosage: 75 MG/M2, UNKNOWN FREQ. (D1-D7)
     Route: 065
     Dates: start: 202104, end: 2021
  4. VENETOCLAX [Concomitant]
     Active Substance: VENETOCLAX
     Indication: Acute myeloid leukaemia
     Dosage: 100 MG, UNKNOWN FREQ. D1
     Route: 065
     Dates: start: 202104, end: 202104
  5. VENETOCLAX [Concomitant]
     Active Substance: VENETOCLAX
     Dosage: 200 MG, UNKNOWN FREQ. D2
     Route: 065
     Dates: start: 2021, end: 2021
  6. VENETOCLAX [Concomitant]
     Active Substance: VENETOCLAX
     Dosage: 400 MG, UNKNOWN FREQ. (D3-7)
     Route: 065
     Dates: start: 2021, end: 2021
  7. VENETOCLAX [Concomitant]
     Active Substance: VENETOCLAX
     Dosage: 100 MG, UNKNOWN FREQ. (EVERY 30 DAYS)
     Route: 065
     Dates: start: 2021

REACTIONS (1)
  - Haematotoxicity [Unknown]
